FAERS Safety Report 8187695-4 (Version None)
Quarter: 2012Q1

REPORT INFORMATION
  Report Type: 
  Country: None (occurrence: None)
  Receive Date: 20120306
  Receipt Date: 20111110
  Transmission Date: 20120608
  Serious: No
  Sender: FDA-Public Use
  Company Number: US-GLAXOSMITHKLINE-A0952631A

PATIENT
  Age: 22 Year
  Sex: Male

DRUGS (2)
  1. NO CONCURRENT MEDICATION [Concomitant]
  2. LAMICTAL [Suspect]
     Indication: MENTAL DISORDER
     Dosage: 100MG PER DAY
     Route: 048
     Dates: start: 20100101

REACTIONS (3)
  - RASH [None]
  - FEELING ABNORMAL [None]
  - DISTURBANCE IN ATTENTION [None]
